FAERS Safety Report 9525233 (Version 1)
Quarter: 2013Q1

REPORT INFORMATION
  Report Type: Spontaneous
  Country: US (occurrence: None)
  Receive Date: 20130313
  Receipt Date: 20130313
  Transmission Date: 20140127
  Serious: No
  Sender: FDA-Public Use
  Company Number: 1000028620

PATIENT
  Age: 55 Year
  Sex: Male

DRUGS (5)
  1. SAVELLA (MILNACIPRAN HYDROCHLORIDE) (12.5 MILLIGRAM, TABLETS) [Suspect]
     Indication: FIBROMYALGIA
     Dosage: 12.5 MG (12.5 MG, 1 IN 1 D), ORAL
     Route: 048
     Dates: start: 201202, end: 201202
  2. SAVELLA (MILNACIPRAN HYDROCHLORIDE) (50 MILLIGRAM, TABLETS) [Suspect]
     Indication: FIBROMYALGIA
     Dosage: 100 MG (50 MG, 2 IN 1 D), ORAL
     Route: 048
     Dates: start: 201202, end: 20120218
  3. CYMBALTA (DULOXETINE HYDROCHLORIDE) (DULOXETINE HYDROCHLORIDE) [Concomitant]
  4. FLOMAX (TAMSULOSIN) (TAMSULOSIN) [Concomitant]
  5. TRAMADOL (TRAMADOL) (TRAMADOL) [Concomitant]

REACTIONS (6)
  - Hot flush [None]
  - Paraesthesia [None]
  - Nervousness [None]
  - Dizziness [None]
  - Confusional state [None]
  - Nausea [None]
